FAERS Safety Report 15614691 (Version 1)
Quarter: 2018Q4

REPORT INFORMATION
  Report Type: Other
  Country: FR (occurrence: FR)
  Receive Date: 20181113
  Receipt Date: 20181113
  Transmission Date: 20190205
  Serious: Yes (Disabling)
  Sender: FDA-Public Use
  Company Number: FR-DENTSPLY-2018SCDP000491

PATIENT
  Age: 77 Year
  Sex: Male

DRUGS (2)
  1. XYLOCAINE WITH ADRENALINE (EPINEPHRINE) [Suspect]
     Active Substance: EPINEPHRINE BITARTRATE\LIDOCAINE HYDROCHLORIDE
     Indication: SPINAL PAIN
     Dosage: 4 ML, UNK
     Dates: start: 20181003
  2. HYDROCORTANCYL                     /00016201/ [Suspect]
     Active Substance: PREDNISONE
     Indication: SPINAL PAIN
     Dosage: 3 MG, UNK
     Route: 024
     Dates: start: 20181003, end: 20181003

REACTIONS (1)
  - Paraplegia [None]

NARRATIVE: CASE EVENT DATE: 20181003
